FAERS Safety Report 9176598 (Version 2)
Quarter: 2013Q2

REPORT INFORMATION
  Report Type: Spontaneous
  Country: GR (occurrence: GR)
  Receive Date: 20130321
  Receipt Date: 20130412
  Transmission Date: 20140414
  Serious: Yes (Other)
  Sender: FDA-Public Use
  Company Number: GR-JNJFOC-20130308355

PATIENT
  Sex: Female

DRUGS (2)
  1. REMICADE [Suspect]
     Indication: EXPOSURE VIA BODY FLUID
     Route: 050
  2. METHOTREXATE [Suspect]
     Indication: EXPOSURE VIA BODY FLUID
     Route: 050

REACTIONS (1)
  - Exposure during pregnancy [Recovered/Resolved]
